FAERS Safety Report 13554724 (Version 1)
Quarter: 2017Q2

REPORT INFORMATION
  Report Type: Spontaneous
  Country: US (occurrence: US)
  Receive Date: 20170517
  Receipt Date: 20170517
  Transmission Date: 20170830
  Serious: Yes (Other)
  Sender: FDA-Public Use
  Company Number: US-CELGENEUS-USA-20170503472

PATIENT
  Sex: Male

DRUGS (3)
  1. REVLIMID [Suspect]
     Active Substance: LENALIDOMIDE
     Indication: MYELODYSPLASTIC SYNDROME
     Dosage: 5 MILLIGRAM
     Route: 048
     Dates: start: 201705
  2. REVLIMID [Suspect]
     Active Substance: LENALIDOMIDE
     Indication: HAEMATOPOIETIC NEOPLASM
     Dosage: 10 MILLIGRAM
     Route: 048
     Dates: start: 20170308
  3. REVLIMID [Suspect]
     Active Substance: LENALIDOMIDE
     Indication: LYMPHATIC SYSTEM NEOPLASM

REACTIONS (2)
  - Laboratory test abnormal [Unknown]
  - Platelet count decreased [Unknown]

NARRATIVE: CASE EVENT DATE: 2017
